FAERS Safety Report 8340504-2 (Version None)
Quarter: 2012Q2

REPORT INFORMATION
  Report Type: 
  Country: None (occurrence: None)
  Receive Date: 20120502
  Receipt Date: 20120502
  Transmission Date: 20120825
  Serious: Yes (Other)
  Sender: FDA-Public Use
  Company Number: None

PATIENT
  Sex: Male
  Weight: 20.8655 kg

DRUGS (1)
  1. FOCALIN [Suspect]
     Indication: TIC
     Dosage: 5 MG ONE PILL AT 3 PM ORALLY
     Route: 048
     Dates: start: 20111001

REACTIONS (2)
  - TIC [None]
  - PRODUCT SUBSTITUTION ISSUE [None]
